FAERS Safety Report 13260378 (Version 1)
Quarter: 2017Q1

REPORT INFORMATION
  Report Type: Spontaneous
  Country: US (occurrence: US)
  Receive Date: 20170222
  Receipt Date: 20170222
  Transmission Date: 20170428
  Serious: Yes (Other)
  Sender: FDA-Public Use
  Company Number: US-ASTELLAS-2017US006365

PATIENT
  Age: 74 Year
  Sex: Male

DRUGS (1)
  1. XTANDI [Suspect]
     Active Substance: ENZALUTAMIDE
     Indication: PROSTATE CANCER
     Route: 048
     Dates: start: 20161101

REACTIONS (5)
  - Amnesia [Unknown]
  - Memory impairment [Unknown]
  - Headache [Unknown]
  - Blindness [Unknown]
  - Seizure [Unknown]

NARRATIVE: CASE EVENT DATE: 20170215
